FAERS Safety Report 9942505 (Version 1)
Quarter: 2014Q1

REPORT INFORMATION
  Report Type: Report from Study
  Country: US (occurrence: US)
  Receive Date: 20140303
  Receipt Date: 20140303
  Transmission Date: 20141002
  Serious: Yes (Hospitalization, Other)
  Sender: FDA-Public Use
  Company Number: US-ABBVIE-14P-163-1205640-00

PATIENT
  Age: 19 Year
  Sex: Female
  Weight: 51.3 kg

DRUGS (5)
  1. HUMIRA [Suspect]
     Indication: CROHN^S DISEASE
     Route: 058
     Dates: start: 201310, end: 201401
  2. HUMIRA [Suspect]
     Route: 058
     Dates: start: 201401
  3. PREDNISONE [Concomitant]
     Indication: CROHN^S DISEASE
  4. TYLENOL [Concomitant]
     Indication: CROHN^S DISEASE
  5. OXYCODONE [Concomitant]
     Indication: CROHN^S DISEASE

REACTIONS (10)
  - Dizziness [Not Recovered/Not Resolved]
  - Crohn^s disease [Not Recovered/Not Resolved]
  - Abdominal pain [Not Recovered/Not Resolved]
  - Diarrhoea [Not Recovered/Not Resolved]
  - Rectal haemorrhage [Not Recovered/Not Resolved]
  - Migraine [Not Recovered/Not Resolved]
  - Back pain [Not Recovered/Not Resolved]
  - Enteritis [Not Recovered/Not Resolved]
  - Intestinal stenosis [Not Recovered/Not Resolved]
  - Drug dose omission [Not Recovered/Not Resolved]
